FAERS Safety Report 4652096-X (Version None)
Quarter: 2005Q2

REPORT INFORMATION
  Report Type: 
  Country: None (occurrence: None)
  Receive Date: 20050504
  Receipt Date: 20050406
  Transmission Date: 20051028
  Serious: Yes (Hospitalization, Other)
  Sender: FDA-Public Use
  Company Number: 200513216GDDC

PATIENT
  Age: 3 Month
  Sex: Female

DRUGS (1)
  1. CLEXANE [Suspect]
     Dosage: DOSE: UNK
     Route: 064

REACTIONS (6)
  - COAGULOPATHY [None]
  - DRUG EXPOSURE DURING PREGNANCY [None]
  - DRUG EXPOSURE VIA BREAST MILK [None]
  - IDIOPATHIC THROMBOCYTOPENIC PURPURA [None]
  - PLATELET COUNT DECREASED [None]
  - RASH [None]
